FAERS Safety Report 20675092 (Version 3)
Quarter: 2022Q2

REPORT INFORMATION
  Report Type: Spontaneous
  Country: US (occurrence: US)
  Receive Date: 20220405
  Receipt Date: 20220602
  Transmission Date: 20220721
  Serious: No
  Sender: FDA-Public Use
  Company Number: US-BEH-2022143713

PATIENT
  Sex: Male
  Weight: 33 kg

DRUGS (3)
  1. HIZENTRA [Suspect]
     Active Substance: HUMAN IMMUNOGLOBULIN G
     Indication: Immunodeficiency
     Dosage: 4 GRAM, QW
     Route: 058
     Dates: start: 202110
  2. HIZENTRA [Suspect]
     Active Substance: HUMAN IMMUNOGLOBULIN G
     Indication: Hyper IgM syndrome
  3. AZITHROMYCIN ANHYDROUS [Concomitant]
     Active Substance: AZITHROMYCIN ANHYDROUS
     Dosage: 500 MILLIGRAM, QW
     Route: 048

REACTIONS (4)
  - Urticaria [Recovered/Resolved]
  - Product use issue [Recovered/Resolved]
  - Skin infection [Recovered/Resolved]
  - Product use issue [Recovered/Resolved]
